FAERS Safety Report 7882962-3 (Version None)
Quarter: 2011Q4

REPORT INFORMATION
  Report Type: 
  Country: None (occurrence: None)
  Receive Date: 20111101
  Receipt Date: 20111027
  Transmission Date: 20120403
  Serious: Yes (Disabling)
  Sender: FDA-Public Use
  Company Number: PHHY2011SE95426

PATIENT
  Sex: Male

DRUGS (1)
  1. DICLOFENAC SODIUM [Suspect]
     Indication: BURSITIS
     Dosage: UNK
     Dates: start: 20100101

REACTIONS (2)
  - IMPAIRED HEALING [None]
  - TENDON RUPTURE [None]
